FAERS Safety Report 15615385 (Version 2)
Quarter: 2018Q4

REPORT INFORMATION
  Report Type: Other
  Country: IT (occurrence: IT)
  Receive Date: 20181114
  Receipt Date: 20181128
  Transmission Date: 20190205
  Serious: Yes (Hospitalization)
  Sender: FDA-Public Use
  Company Number: IT-APOTEX-2018AP024443

PATIENT

DRUGS (8)
  1. PAROXETINE. [Suspect]
     Active Substance: PAROXETINE
     Indication: PRODUCT USED FOR UNKNOWN INDICATION
     Dosage: 40 MG, IN TOTAL
     Route: 048
  2. OMEPRAZEN                          /00661201/ [Suspect]
     Active Substance: OMEPRAZOLE
     Indication: INTENTIONAL OVERDOSE
     Dosage: 4 DF, IN TOTAL
     Route: 048
  3. RIVOTRIL [Suspect]
     Active Substance: CLONAZEPAM
     Indication: INTENTIONAL OVERDOSE
     Dosage: 2 DF, IN TOTAL
     Route: 048
  4. CLONAZEPAM. [Suspect]
     Active Substance: CLONAZEPAM
     Indication: INTENTIONAL OVERDOSE
     Dosage: 2 DF, IN TOTAL
     Route: 048
  5. RAMIPRIL. [Suspect]
     Active Substance: RAMIPRIL
     Indication: INTENTIONAL OVERDOSE
     Dosage: 15 MG, IN TOTAL
     Route: 048
  6. IBUPROFEN W/PARACETAMOL [Suspect]
     Active Substance: ACETAMINOPHEN\IBUPROFEN
     Indication: INTENTIONAL OVERDOSE
     Dosage: 2 DF, IN TOTAL
     Route: 048
  7. PAROXETINE. [Suspect]
     Active Substance: PAROXETINE
     Dosage: UNK
     Route: 048
  8. TACHIFENE [Suspect]
     Active Substance: ACETAMINOPHEN\IBUPROFEN
     Indication: INTENTIONAL OVERDOSE
     Dosage: 2 DF, IN TOTAL
     Route: 048

REACTIONS (2)
  - Intentional overdose [Unknown]
  - Hypotension [Recovered/Resolved]

NARRATIVE: CASE EVENT DATE: 20181026
